FAERS Safety Report 7373006-0 (Version None)
Quarter: 2011Q1

REPORT INFORMATION
  Report Type: 
  Country: None (occurrence: None)
  Receive Date: 20110324
  Receipt Date: 20110310
  Transmission Date: 20110831
  Serious: Yes (Other)
  Sender: FDA-Public Use
  Company Number: PHHY2010US54487

PATIENT
  Sex: Female
  Weight: 72 kg

DRUGS (16)
  1. ETODOLAC [Concomitant]
     Dosage: 400 MG, BID
  2. AZELASTINE HCL [Concomitant]
     Dosage: AS NEEDED
     Route: 045
  3. FEXOFENADINE HCL [Concomitant]
     Dosage: 60 MG, BID
     Route: 048
  4. THYROID [Concomitant]
     Dosage: 1 GM/ DAY
     Route: 048
  5. HYDROCHLOROTHIAZIDE [Concomitant]
     Dosage: AS NEEDED
     Route: 048
  6. TELMISARTAN [Concomitant]
     Dosage: 40 MG/DAY
     Route: 048
  7. SIMVASTATIN [Concomitant]
     Dosage: 20MG EVERYDAY BEFORE SLEEP
     Route: 048
  8. ESTRADIOL [Concomitant]
     Dosage: 5MG EVERY DAY
     Route: 048
  9. ACETAMINOPHEN [Concomitant]
     Dosage: 650 MG AS NEEDED
     Route: 048
  10. GLEEVEC [Suspect]
     Indication: CHRONIC MYELOID LEUKAEMIA
     Dosage: 800 MG, QD
     Route: 048
     Dates: start: 20100726
  11. GLEEVEC [Suspect]
     Dosage: 300 MG, DAILY
     Route: 048
  12. VITAMIN D [Concomitant]
     Dosage: 1.25 MG EVERY 1 MINUTE
     Route: 058
  13. TETRACYCLINE HCL [Concomitant]
     Dosage: 500 MG, UNK
     Route: 048
  14. NITROFURANTOIN MACROCRYSTAL [Concomitant]
     Dosage: AS NEEDED
     Route: 048
  15. CYANOCOBALAMIN [Concomitant]
     Route: 048
  16. FAMCICLOVIR [Concomitant]
     Route: 048

REACTIONS (12)
  - HEADACHE [None]
  - WEIGHT INCREASED [None]
  - PAIN [None]
  - SINUS CONGESTION [None]
  - RASH GENERALISED [None]
  - GENERALISED OEDEMA [None]
  - DIARRHOEA [None]
  - HAEMATOCHEZIA [None]
  - FATIGUE [None]
  - EAR DISCOMFORT [None]
  - EYE DISORDER [None]
  - EAR DISORDER [None]
